FAERS Safety Report 10204809 (Version 1)
Quarter: 2014Q2

REPORT INFORMATION
  Report Type: Spontaneous
  Country: IN (occurrence: None)
  Receive Date: 20140527
  Receipt Date: 20140527
  Transmission Date: 20141212
  Serious: Yes (Hospitalization)
  Sender: FDA-Public Use
  Company Number: UCM201405-000076

PATIENT
  Age: 60 Year
  Sex: Female

DRUGS (2)
  1. DIVALPROEX SODIUM [Suspect]
     Indication: AGITATION
     Dosage: STOPPED
  2. OLANZAPINE (OLANZAPINE) (OLANZAPINE) [Suspect]
     Indication: PSYCHOTIC DISORDER
     Dosage: STOPPED

REACTIONS (9)
  - Neuroleptic malignant syndrome [None]
  - Toxicity to various agents [None]
  - Anaemia [None]
  - Blood sodium decreased [None]
  - Alanine aminotransferase increased [None]
  - Aspartate aminotransferase increased [None]
  - Ammonia increased [None]
  - Blood creatine phosphokinase increased [None]
  - Dehydration [None]
